FAERS Safety Report 5268841-9 (Version None)
Quarter: 2007Q1

REPORT INFORMATION
  Report Type: 
  Country: None (occurrence: None)
  Receive Date: 20061213
  Receipt Date: 20031224
  Transmission Date: 20070707
  Serious: Yes (Other)
  Sender: FDA-Public Use
  Company Number: 2003UW15006

PATIENT
  Age: 64 Year
  Sex: Female
  Weight: 56.246 kg

DRUGS (10)
  1. IRESSA [Suspect]
     Indication: NON-SMALL CELL LUNG CANCER
     Dosage: 250 MG PO
     Route: 048
  2. LEVOXYL [Concomitant]
  3. XANAX [Concomitant]
  4. OGEN [Concomitant]
  5. HYDROCODONE CP [Concomitant]
  6. MEDROXYPROGESTERONE [Concomitant]
  7. VICODIN [Concomitant]
  8. TYLENOL [Concomitant]
  9. VITAMIN CAP [Concomitant]
  10. CALCIUM [Concomitant]

REACTIONS (4)
  - DERMATITIS ACNEIFORM [None]
  - DIARRHOEA [None]
  - EYE PAIN [None]
  - FACIAL PAIN [None]
